FAERS Safety Report 8469423-8 (Version None)
Quarter: 2012Q2

REPORT INFORMATION
  Report Type: 
  Country: None (occurrence: None)
  Receive Date: 20120626
  Receipt Date: 20120619
  Transmission Date: 20120825
  Serious: Yes (Death, Hospitalization)
  Sender: FDA-Public Use
  Company Number: PE-PFIZER INC-2012149108

PATIENT
  Age: 62 Year
  Sex: Female
  Weight: 81.5 kg

DRUGS (5)
  1. CELECOXIB [Suspect]
     Indication: OSTEOARTHRITIS
     Dosage: 100 MG, 2X/DAY
     Route: 048
  2. CELECOXIB [Suspect]
     Indication: RHEUMATOID ARTHRITIS
  3. NEXIUM [Concomitant]
     Indication: PROPHYLAXIS AGAINST GASTROINTESTINAL ULCER
  4. ENALAPRIL [Concomitant]
     Indication: HYPERTENSION
     Dosage: 10 MG, 2X/DAY
     Route: 048
     Dates: start: 20070906
  5. ACETAMINOPHEN [Concomitant]
     Indication: PAIN
     Dosage: 500 MG, 3X/DAY
     Route: 048
     Dates: start: 20070906

REACTIONS (2)
  - DEATH [None]
  - INTESTINAL OBSTRUCTION [None]
